FAERS Safety Report 14141792 (Version 2)
Quarter: 2017Q4

REPORT INFORMATION
  Report Type: Spontaneous
  Country: US (occurrence: US)
  Receive Date: 20171030
  Receipt Date: 20171103
  Transmission Date: 20180321
  Serious: Yes (Other)
  Sender: FDA-Public Use
  Company Number: US-PFIZER INC-2017456922

PATIENT

DRUGS (1)
  1. MORPHINE SULFATE. [Suspect]
     Active Substance: MORPHINE SULFATE
     Indication: ANALGESIC THERAPY
     Dosage: 4 MG/HR

REACTIONS (4)
  - Unresponsive to stimuli [Unknown]
  - Brain injury [Unknown]
  - Cardiac arrest [Unknown]
  - Incorrect dose administered [Unknown]
